FAERS Safety Report 7763224-1 (Version None)
Quarter: 2011Q3

REPORT INFORMATION
  Report Type: 
  Country: None (occurrence: None)
  Receive Date: 20110920
  Receipt Date: 20110916
  Transmission Date: 20111222
  Serious: Yes (Death)
  Sender: FDA-Public Use
  Company Number: PHHY2011VN82576

PATIENT
  Sex: Male
  Weight: 52 kg

DRUGS (2)
  1. GLEEVEC [Suspect]
     Indication: GASTROINTESTINAL STROMAL TUMOUR
     Dosage: 400 MG/DAY
     Route: 048
  2. GLEEVEC [Suspect]
     Indication: METASTASES TO LIVER
     Dosage: 400 MG/DAY
     Route: 048
     Dates: start: 20110825, end: 20110827

REACTIONS (1)
  - DEATH [None]
